FAERS Safety Report 5693158-8 (Version None)
Quarter: 2008Q2

REPORT INFORMATION
  Report Type: 
  Country: None (occurrence: None)
  Receive Date: 20080402
  Receipt Date: 20080402
  Transmission Date: 20081010
  Serious: Yes (Hospitalization)
  Sender: FDA-Public Use
  Company Number: None

PATIENT
  Age: 49 Year
  Sex: Male
  Weight: 87.0906 kg

DRUGS (4)
  1. PROGRAF [Suspect]
     Indication: IMMUNOSUPPRESSANT DRUG THERAPY
     Dosage: 3MG BID PO
     Route: 048
     Dates: start: 20070925
  2. PROGRAF [Suspect]
     Indication: RENAL TRANSPLANT
     Dosage: 3MG BID PO
     Route: 048
     Dates: start: 20070925
  3. MYFORTIC [Suspect]
     Indication: IMMUNOSUPPRESSANT DRUG THERAPY
     Dosage: 360MG BID PO
     Route: 048
     Dates: start: 20070925
  4. MYFORTIC [Suspect]
     Indication: RENAL TRANSPLANT
     Dosage: 360MG BID PO
     Route: 048
     Dates: start: 20070925

REACTIONS (2)
  - UPPER RESPIRATORY TRACT INFECTION [None]
  - VIRAL INFECTION [None]
